FAERS Safety Report 13804462 (Version 2)
Quarter: 2017Q3

REPORT INFORMATION
  Report Type: Spontaneous
  Country: US (occurrence: US)
  Receive Date: 20170728
  Receipt Date: 20170911
  Transmission Date: 20171127
  Serious: No
  Sender: FDA-Public Use
  Company Number: US-ASTRAZENECA-2017SE73649

PATIENT
  Age: 671 Month
  Sex: Male
  Weight: 101.2 kg

DRUGS (9)
  1. LISINOPRIL. [Suspect]
     Active Substance: LISINOPRIL
     Indication: HYPERTENSION
     Route: 048
     Dates: start: 2004
  2. VOLTARIN [Concomitant]
     Indication: ARTHRALGIA
     Dosage: DAILY
     Route: 061
     Dates: start: 201608
  3. GABAPENTIN. [Concomitant]
     Active Substance: GABAPENTIN
     Indication: NEUROPATHY PERIPHERAL
     Route: 048
     Dates: start: 201611
  4. BYDUREON [Suspect]
     Active Substance: EXENATIDE
     Indication: TYPE 2 DIABETES MELLITUS
     Route: 058
     Dates: start: 201607
  5. TRAMADOL. [Concomitant]
     Active Substance: TRAMADOL
     Indication: NEUROPATHY PERIPHERAL
     Route: 048
     Dates: start: 201611
  6. TRAMADOL. [Concomitant]
     Active Substance: TRAMADOL
     Indication: PAIN
     Route: 048
     Dates: start: 201611
  7. METFORMIN [Concomitant]
     Active Substance: METFORMIN HYDROCHLORIDE
     Indication: TYPE 2 DIABETES MELLITUS
     Route: 048
     Dates: start: 2004
  8. FLEXERIL [Concomitant]
     Active Substance: CYCLOBENZAPRINE HYDROCHLORIDE
     Indication: PAIN
     Route: 048
  9. VOLTARIN [Concomitant]
     Indication: PAIN IN EXTREMITY
     Dosage: DAILY
     Route: 061
     Dates: start: 201608

REACTIONS (15)
  - Nerve injury [Unknown]
  - Peripheral swelling [Unknown]
  - Blood glucose increased [Unknown]
  - Contusion [Unknown]
  - Drug ineffective [Unknown]
  - Glycosylated haemoglobin increased [Unknown]
  - Weight increased [Unknown]
  - Weight decreased [Unknown]
  - Joint swelling [Unknown]
  - Toe amputation [Unknown]
  - Balance disorder [Unknown]
  - Neuropathy peripheral [Unknown]
  - Fall [Unknown]
  - Ligament injury [Unknown]
  - Drug dose omission [Unknown]

NARRATIVE: CASE EVENT DATE: 201408
